FAERS Safety Report 4375683-5 (Version None)
Quarter: 2004Q2

REPORT INFORMATION
  Report Type: 
  Country: None (occurrence: None)
  Receive Date: 20040607
  Receipt Date: 20040604
  Transmission Date: 20050107
  Serious: Yes (Death, Other)
  Sender: FDA-Public Use
  Company Number: KII-2003-0010778

PATIENT
  Age: 71 Year
  Sex: Male

DRUGS (3)
  1. MORPHINE SULFATE [Suspect]
  2. OXYCODONE HCL [Suspect]
  3. HEROIN (DIAMORPHINE) [Suspect]

REACTIONS (3)
  - DRUG LEVEL ABOVE THERAPEUTIC [None]
  - FEELING ABNORMAL [None]
  - METASTASES TO LUNG [None]
